FAERS Safety Report 4360012-3 (Version None)
Quarter: 2004Q2

REPORT INFORMATION
  Report Type: 
  Country: None (occurrence: None)
  Receive Date: 20040518
  Receipt Date: 20040518
  Transmission Date: 20050107
  Serious: Yes (Disabling)
  Sender: FDA-Public Use
  Company Number: None

PATIENT
  Age: 36 Year
  Sex: Female
  Weight: 45.3597 kg

DRUGS (2)
  1. GENTAMICIN [Suspect]
     Indication: CROHN'S DISEASE
     Dosage: INTRAVENOUS
     Route: 042
     Dates: start: 20040201, end: 20040217
  2. GENTAMICIN [Suspect]
     Indication: INTESTINAL PERFORATION
     Dosage: INTRAVENOUS
     Route: 042
     Dates: start: 20040201, end: 20040217

REACTIONS (2)
  - ALOPECIA [None]
  - VERTIGO [None]
